FAERS Safety Report 17800533 (Version 1)
Quarter: 2020Q2

REPORT INFORMATION
  Report Type: Report from Study
  Country: None (occurrence: US)
  Receive Date: 20200519
  Receipt Date: 20200519
  Transmission Date: 20200714
  Serious: Yes (Other)
  Sender: FDA-Public Use
  Company Number: US-ABBVIE-20K-163-3403231-00

PATIENT
  Age: 21 Year
  Sex: Male
  Weight: 62.2 kg

DRUGS (4)
  1. OMEPRAZOLE. [Concomitant]
     Active Substance: OMEPRAZOLE
     Indication: COLITIS ULCERATIVE
  2. BUDESONIDE. [Concomitant]
     Active Substance: BUDESONIDE
     Indication: COLITIS ULCERATIVE
  3. IRON [Concomitant]
     Active Substance: IRON
     Indication: COLITIS ULCERATIVE
  4. HUMIRA [Suspect]
     Active Substance: ADALIMUMAB
     Indication: COLITIS ULCERATIVE
     Route: 058
     Dates: start: 201909, end: 202004

REACTIONS (2)
  - Haematochezia [Recovering/Resolving]
  - Colitis [Not Recovered/Not Resolved]

NARRATIVE: CASE EVENT DATE: 202003
